FAERS Safety Report 6558739-8 (Version None)
Quarter: 2010Q1

REPORT INFORMATION
  Report Type: 
  Country: None (occurrence: None)
  Receive Date: 20100129
  Receipt Date: 20100120
  Transmission Date: 20100710
  Serious: No
  Sender: FDA-Public Use
  Company Number: B0626822A

PATIENT
  Sex: Female

DRUGS (2)
  1. RELENZA [Suspect]
     Indication: INFLUENZA
     Dosage: 10MG TWICE PER DAY
     Route: 048
     Dates: start: 20100107
  2. THEO-DUR [Suspect]
     Dosage: 50MG THREE TIMES PER DAY
     Route: 048
     Dates: end: 20100108

REACTIONS (1)
  - MUSCULOSKELETAL STIFFNESS [None]
